FAERS Safety Report 5650482-2 (Version None)
Quarter: 2008Q1

REPORT INFORMATION
  Report Type: 
  Country: None (occurrence: None)
  Receive Date: 20080131
  Receipt Date: 20071219
  Transmission Date: 20080703
  Serious: No
  Sender: FDA-Public Use
  Company Number: US200712004248

PATIENT
  Age: 55 Year
  Sex: Female
  Weight: 64.9 kg

DRUGS (3)
  1. BYETTA [Suspect]
     Indication: INSULIN-REQUIRING TYPE 2 DIABETES MELLITUS
     Dosage: 5 UG, 2/D, SUBCUTANEOUS
     Route: 058
     Dates: start: 20070801
  2. GLUCOPHAGE [Concomitant]
  3. INSULIN (INSULIN0 [Concomitant]

REACTIONS (1)
  - BLOOD GLUCOSE INCREASED [None]
